FAERS Safety Report 25347605 (Version 1)
Quarter: 2025Q2

REPORT INFORMATION
  Report Type: Spontaneous
  Country: US (occurrence: US)
  Receive Date: 20250522
  Receipt Date: 20250522
  Transmission Date: 20250716
  Serious: No
  Sender: INSUD PHARMA
  Company Number: US-INSUD PHARMA-2505US03752

PATIENT

DRUGS (3)
  1. NORETHINDRONE [Suspect]
     Active Substance: NORETHINDRONE
     Indication: Endometriosis
     Route: 048
  2. NORETHINDRONE [Suspect]
     Active Substance: NORETHINDRONE
     Indication: Migraine
  3. NORETHINDRONE [Suspect]
     Active Substance: NORETHINDRONE
     Indication: Haemorrhage

REACTIONS (2)
  - Paranoia [Unknown]
  - Product use in unapproved indication [Unknown]
